FAERS Safety Report 5322528-2 (Version None)
Quarter: 2007Q2

REPORT INFORMATION
  Report Type: 
  Country: None (occurrence: None)
  Receive Date: 20070511
  Receipt Date: 20070430
  Transmission Date: 20071010
  Serious: Yes (Hospitalization)
  Sender: FDA-Public Use
  Company Number: US-JNJFOC-20070500314

PATIENT
  Sex: Female
  Weight: 42 kg

DRUGS (5)
  1. INFLIXIMAB [Suspect]
     Route: 042
  2. INFLIXIMAB [Suspect]
     Indication: INFLAMMATORY BOWEL DISEASE
     Route: 042
  3. AZATHIOPRINE [Concomitant]
  4. PREDNISONE TAB [Concomitant]
  5. METRONIDAZOLE [Concomitant]

REACTIONS (1)
  - INTESTINAL OBSTRUCTION [None]
